FAERS Safety Report 8169938-6 (Version None)
Quarter: 2012Q1

REPORT INFORMATION
  Report Type: 
  Country: None (occurrence: None)
  Receive Date: 20120228
  Receipt Date: 20120228
  Transmission Date: 20120608
  Serious: Yes (Life-Threatening)
  Sender: FDA-Public Use
  Company Number: None

PATIENT
  Age: 32 Year
  Sex: Female
  Weight: 58.059 kg

DRUGS (1)
  1. CHANTIX [Suspect]
     Dosage: 1.0 MG
     Route: 048
     Dates: start: 20120224, end: 20120224

REACTIONS (3)
  - MIDDLE INSOMNIA [None]
  - MYOCARDIAL INFARCTION [None]
  - PARALYSIS [None]
